FAERS Safety Report 19881250 (Version 1)
Quarter: 2021Q3

REPORT INFORMATION
  Report Type: Spontaneous
  Country: NO (occurrence: NO)
  Receive Date: 20210924
  Receipt Date: 20210924
  Transmission Date: 20211014
  Serious: Yes (Hospitalization)
  Sender: FDA-Public Use
  Company Number: NO-ROCHE-2919376

PATIENT
  Age: 13 Year
  Sex: Female

DRUGS (2)
  1. ROACTEMRA [Suspect]
     Active Substance: TOCILIZUMAB
     Indication: STILL^S DISEASE
     Route: 058
     Dates: start: 201802
  2. IBUX [Concomitant]
     Active Substance: IBUPROFEN
     Indication: PAIN
     Dosage: AS NEEDED. RARELY USED
     Route: 048
     Dates: start: 2018

REACTIONS (1)
  - Vulval ulceration [Not Recovered/Not Resolved]

NARRATIVE: CASE EVENT DATE: 202009
